FAERS Safety Report 17301329 (Version 1)
Quarter: 2020Q1

REPORT INFORMATION
  Report Type: Spontaneous
  Country: IT (occurrence: IT)
  Receive Date: 20200122
  Receipt Date: 20200122
  Transmission Date: 20200409
  Serious: Yes (Other)
  Sender: FDA-Public Use
  Company Number: IT-PFIZER INC-2020026713

PATIENT
  Age: 22 Year
  Sex: Female

DRUGS (6)
  1. DEXAMETHASONE SODIUM PHOSPHATE. [Suspect]
     Active Substance: DEXAMETHASONE SODIUM PHOSPHATE
     Dosage: 8 MG, SINGLE
     Route: 042
     Dates: start: 20191213, end: 20191213
  2. PROPOFOL KABI [Suspect]
     Active Substance: PROPOFOL
     Indication: INDUCTION OF ANAESTHESIA
     Dosage: 150 MG, SINGLE
     Route: 042
     Dates: start: 20191213, end: 20191213
  3. ONDANSETRONE ACCORD HEALTHCARE [Suspect]
     Active Substance: ONDANSETRON HYDROCHLORIDE
     Dosage: 4 MG, SINGLE
     Route: 042
     Dates: start: 20191213, end: 20191213
  4. MIDAZOLAM ACCORD [Suspect]
     Active Substance: MIDAZOLAM HYDROCHLORIDE
     Indication: INDUCTION OF ANAESTHESIA
     Dosage: 1 MG, SINGLE
     Route: 042
     Dates: start: 20191213, end: 20191213
  5. FENTANEST [Suspect]
     Active Substance: FENTANYL CITRATE
     Indication: INDUCTION OF ANAESTHESIA
     Dosage: 0.1 MG, SINGLE
     Route: 042
     Dates: start: 20191213, end: 20191213
  6. CEFAZOLINA [CEFAZOLIN SODIUM] [Suspect]
     Active Substance: CEFAZOLIN SODIUM
     Indication: ANTIBIOTIC PROPHYLAXIS
     Dosage: 300 MG, SINGLE
     Route: 042
     Dates: start: 20191213, end: 20191213

REACTIONS (3)
  - Chest expansion decreased [Recovered/Resolved]
  - Hypotension [Recovered/Resolved]
  - Airway peak pressure increased [Recovered/Resolved]

NARRATIVE: CASE EVENT DATE: 20191213
